FAERS Safety Report 8912608 (Version 2)
Quarter: 2012Q4

REPORT INFORMATION
  Report Type: 
  Country: CO (occurrence: CO)
  Receive Date: 20121116
  Receipt Date: 20121207
  Transmission Date: 20130627
  Serious: Yes (Other)
  Sender: FDA-Public Use
  Company Number: CO-AMGEN-COLSP2012073057

PATIENT
  Age: 73 Year
  Sex: Male

DRUGS (5)
  1. ENBREL [Suspect]
     Indication: RHEUMATOID ARTHRITIS
     Dosage: 50 mg, weekly
     Route: 058
     Dates: start: 2008
  2. PREDNISOLON                        /00016201/ [Concomitant]
     Indication: RHEUMATOID ARTHRITIS
     Dosage: 0.5 mg, 1x/day
     Route: 048
     Dates: start: 20040407
  3. METHOTREXATE [Concomitant]
     Indication: RHEUMATOID ARTHRITIS
     Dosage: 4 tablets, weekly (on Saturdays)
     Route: 048
     Dates: start: 20040408
  4. ACETAMINOPHEN [Concomitant]
     Dosage: UNK
     Dates: start: 20040407
  5. FOLIC ACID [Concomitant]
     Indication: RHEUMATOID ARTHRITIS
     Dosage: 1 tablet, 1x/day
     Route: 048
     Dates: start: 20040408

REACTIONS (6)
  - Foot deformity [Not Recovered/Not Resolved]
  - Hand deformity [Unknown]
  - Ocular discomfort [Unknown]
  - Gait disturbance [Unknown]
  - Bone deformity [Unknown]
  - Pain in extremity [Not Recovered/Not Resolved]
